FAERS Safety Report 6981098-3 (Version None)
Quarter: 2010Q3

REPORT INFORMATION
  Report Type: 
  Country: None (occurrence: None)
  Receive Date: 20100914
  Receipt Date: 20100902
  Transmission Date: 20110219
  Serious: Yes (Other)
  Sender: FDA-Public Use
  Company Number: JP-MERCK-1009USA00883

PATIENT
  Age: 60 Year
  Sex: Male

DRUGS (8)
  1. PEPCID [Suspect]
     Route: 048
  2. PROGRAF [Suspect]
     Indication: LIVER TRANSPLANT
     Route: 048
  3. PREDNISOLONE [Concomitant]
     Route: 065
  4. ACYCLOVIR [Concomitant]
     Route: 048
  5. SULFAMETHOXAZOLE AND TRIMETHOPRIM [Concomitant]
     Route: 065
  6. FLUCONAZOLE [Concomitant]
     Route: 042
  7. MEROPENEM [Concomitant]
     Route: 065
  8. CYCLOSPORINE [Concomitant]
     Route: 065

REACTIONS (1)
  - THROMBOTIC MICROANGIOPATHY [None]
